FAERS Safety Report 16561507 (Version 1)
Quarter: 2019Q3

REPORT INFORMATION
  Report Type: Spontaneous
  Country: US (occurrence: US)
  Receive Date: 20190711
  Receipt Date: 20190711
  Transmission Date: 20191004
  Serious: Yes (Hospitalization, Other)
  Sender: FDA-Public Use
  Company Number: US-ASTRAZENECA-2019SE96769

PATIENT
  Sex: Male

DRUGS (1)
  1. FARXIGA [Suspect]
     Active Substance: DAPAGLIFLOZIN PROPANEDIOL
     Dosage: 10.0MG UNKNOWN
     Route: 048

REACTIONS (5)
  - Thyroid cancer [Unknown]
  - Hypertension [Unknown]
  - Blood pressure systolic decreased [Recovering/Resolving]
  - Diabetes mellitus [Unknown]
  - Dehydration [Recovering/Resolving]
